FAERS Safety Report 8447321-3 (Version None)
Quarter: 2012Q2

REPORT INFORMATION
  Report Type: 
  Country: None (occurrence: None)
  Receive Date: 20120619
  Receipt Date: 20120613
  Transmission Date: 20120825
  Serious: Yes (Other)
  Sender: FDA-Public Use
  Company Number: PHHY2012GR050183

PATIENT
  Age: 90 Year
  Sex: Male

DRUGS (6)
  1. SOLIAN [Concomitant]
     Dosage: 100 UKN, QD
  2. EXELON [Suspect]
     Indication: DEMENTIA ALZHEIMER'S TYPE
     Route: 062
  3. REMERON [Concomitant]
     Dosage: 30 UKN, QD
  4. MEMANTINE HYDROCHLORIDE [Concomitant]
  5. MADOPAR [Concomitant]
     Indication: PARKINSON'S DISEASE
  6. CITALOPRAM HYDROBROMIDE [Concomitant]
     Dosage: UNK UKN, ONCE PER DAY

REACTIONS (1)
  - PLATELET COUNT DECREASED [None]
